FAERS Safety Report 10181157 (Version 1)
Quarter: 2014Q2

REPORT INFORMATION
  Report Type: Spontaneous
  Country: US (occurrence: US)
  Receive Date: 20140519
  Receipt Date: 20140519
  Transmission Date: 20141212
  Serious: No
  Sender: FDA-Public Use
  Company Number: US-AMGEN INC.-USASP2014026947

PATIENT
  Age: 52 Year
  Sex: Female

DRUGS (9)
  1. PROLIA [Suspect]
     Indication: OSTEOPOROSIS POSTMENOPAUSAL
     Route: 065
  2. ZORTRESS [Concomitant]
  3. NEORAL [Concomitant]
  4. PREDNISONE [Concomitant]
  5. ZOLOFT [Concomitant]
  6. ATORVASTATIN [Concomitant]
  7. ACYCLOVIR                          /00587301/ [Concomitant]
  8. VITAMIN D                          /00107901/ [Concomitant]
  9. ASPIRIN [Concomitant]

REACTIONS (3)
  - Osteoarthritis [Unknown]
  - Arthralgia [Unknown]
  - Constipation [Unknown]
